FAERS Safety Report 9507124 (Version 2)
Quarter: 2013Q4

REPORT INFORMATION
  Report Type: Report from Study
  Country: GB (occurrence: GB)
  Receive Date: 20130909
  Receipt Date: 20131031
  Transmission Date: 20140711
  Serious: Yes (Hospitalization, Other)
  Sender: FDA-Public Use
  Company Number: GB-AMGEN-GBRCT2013062662

PATIENT
  Age: 49 Year
  Sex: Male
  Weight: 91 kg

DRUGS (16)
  1. ETANERCEPT [Suspect]
     Indication: PRODUCT USED FOR UNKNOWN INDICATION
     Dosage: 50 MG, WEEKLY
     Route: 065
     Dates: start: 20110516, end: 20120330
  2. OMEPRAZOLE [Concomitant]
     Dosage: UNK
  3. OXYTOCIN [Concomitant]
     Dosage: UNK
  4. BUSCOPAN [Concomitant]
     Dosage: UNK
  5. AMLODIPINE [Concomitant]
     Dosage: UNK
  6. ALFUZOSIN [Concomitant]
     Dosage: UNK
  7. ALFACALCIDOL [Concomitant]
     Dosage: UNK
  8. MAGNESIUM [Concomitant]
     Dosage: UNK
  9. SERETIDE [Concomitant]
     Dosage: UNK
  10. SODIUM BICARBONATE [Concomitant]
     Dosage: UNK
  11. OCTREOTIDE [Concomitant]
     Dosage: UNK
  12. CIPROFLOXACIN [Concomitant]
     Dosage: UNK
  13. ZOPICLONE [Concomitant]
     Dosage: UNK
  14. TRAMADOL [Concomitant]
     Dosage: UNK
  15. LOPERAMIDE [Concomitant]
     Dosage: UNK
  16. CODEINE PHOSPHATE [Concomitant]
     Dosage: UNK

REACTIONS (1)
  - Tonsil cancer [Recovering/Resolving]
